FAERS Safety Report 6694149-0 (Version None)
Quarter: 2010Q2

REPORT INFORMATION
  Report Type: 
  Country: None (occurrence: None)
  Receive Date: 20100423
  Receipt Date: 20091020
  Transmission Date: 20101027
  Serious: No
  Sender: FDA-Public Use
  Company Number: A0812596A

PATIENT
  Age: 37 Year
  Sex: Male

DRUGS (4)
  1. FLOVENT [Suspect]
     Route: 048
     Dates: start: 20090901
  2. FEXOFENADINE [Concomitant]
  3. LORAZEPAM [Concomitant]
  4. PROAIR HFA [Concomitant]

REACTIONS (2)
  - DRUG INEFFECTIVE [None]
  - PHARYNGITIS [None]
